FAERS Safety Report 8353683-8 (Version None)
Quarter: 2012Q2

REPORT INFORMATION
  Report Type: 
  Country: None (occurrence: None)
  Receive Date: 20120511
  Receipt Date: 20120504
  Transmission Date: 20120825
  Serious: Yes (Hospitalization)
  Sender: FDA-Public Use
  Company Number: US-PFIZER INC-2012101630

PATIENT
  Sex: Female
  Weight: 108 kg

DRUGS (11)
  1. IBUPROFEN [Suspect]
     Indication: OSTEOARTHRITIS
     Dosage: 800 MG, 3X/DAY
     Route: 048
     Dates: start: 20090611, end: 20120402
  2. ASPIRIN [Concomitant]
     Indication: CARDIOVASCULAR EVENT PROPHYLAXIS
     Dosage: 325 MG, 1X/DAY
     Route: 048
     Dates: start: 20040101
  3. FOSAMAX [Concomitant]
     Indication: OSTEOPENIA
     Dosage: 70 MG, EVERY WEEK
     Route: 048
     Dates: start: 20060919
  4. LASIX [Concomitant]
     Indication: CARDIAC FAILURE CONGESTIVE
     Dosage: 40 MG, 1X/DAY
     Route: 048
     Dates: start: 20040101
  5. FISH OIL [Concomitant]
     Indication: MEDICAL DIET
     Dosage: 3000 MG, 1X/DAY
     Route: 048
     Dates: start: 20071201
  6. ADVAIR DISKUS 100/50 [Concomitant]
     Indication: ASTHMA
     Dosage: 1 PUFF 2XDAY
     Route: 048
     Dates: start: 20020101
  7. IBUPROFEN [Suspect]
     Indication: RHEUMATOID ARTHRITIS
  8. FLUOXETINE [Concomitant]
     Indication: GENERALISED ANXIETY DISORDER
     Dosage: 20 MG, 2X/DAY
     Route: 048
     Dates: start: 19960101
  9. NEXIUM [Concomitant]
     Indication: PROPHYLAXIS
     Dosage: 40 MG, 1X/DAY
     Route: 048
     Dates: start: 20090611
  10. LYRICA [Concomitant]
     Indication: DIABETIC NEUROPATHY
     Dosage: 50 MG, 1X/DAY
     Route: 048
     Dates: start: 20070114
  11. RAMIPRIL [Concomitant]
     Indication: HYPERTENSION
     Dosage: 10 MG, 1X/DAY
     Route: 048
     Dates: start: 20030101

REACTIONS (1)
  - GASTRIC PERFORATION [None]
